FAERS Safety Report 13732215 (Version 1)
Quarter: 2017Q3

REPORT INFORMATION
  Report Type: Spontaneous
  Country: US (occurrence: US)
  Receive Date: 20170707
  Receipt Date: 20170707
  Transmission Date: 20171127
  Serious: Yes (Hospitalization)
  Sender: FDA-Public Use
  Company Number: US-JNJFOC-20170600269

PATIENT
  Age: 50 Year
  Sex: Male

DRUGS (1)
  1. INVEGA SUSTENNA [Suspect]
     Active Substance: PALIPERIDONE PALMITATE
     Indication: SCHIZOPHRENIA
     Dosage: 156 MG (SECOND INITIATION DOSE)
     Route: 030

REACTIONS (3)
  - Drug dose omission [Unknown]
  - Refusal of treatment by patient [Unknown]
  - Schizophrenia [Unknown]

NARRATIVE: CASE EVENT DATE: 20170525
